FAERS Safety Report 5471351-7 (Version None)
Quarter: 2007Q3

REPORT INFORMATION
  Report Type: 
  Country: None (occurrence: None)
  Receive Date: 20070928
  Receipt Date: 20060829
  Transmission Date: 20080115
  Serious: No
  Sender: FDA-Public Use
  Company Number: US-BRISTOL-MYERS SQUIBB COMPANY-13491915

PATIENT
  Age: 75 Year
  Sex: Male
  Weight: 82 kg

DRUGS (1)
  1. DEFINITY [Suspect]
     Indication: STRESS ECHOCARDIOGRAM
     Dosage: DOSAGE: ONE WHOLE VIAL
     Route: 042
     Dates: start: 20060824

REACTIONS (2)
  - DYSPHAGIA [None]
  - SWELLING FACE [None]
